FAERS Safety Report 17680489 (Version 2)
Quarter: 2020Q2

REPORT INFORMATION
  Report Type: Report from Study
  Country: US (occurrence: US)
  Receive Date: 20200417
  Receipt Date: 20200507
  Transmission Date: 20200714
  Serious: Yes (Other)
  Sender: FDA-Public Use
  Company Number: US-ASTELLAS-2020US013791

PATIENT
  Age: 20 Year
  Sex: Male

DRUGS (4)
  1. TACROLIMUS. [Suspect]
     Active Substance: TACROLIMUS
     Indication: PROPHYLAXIS AGAINST GRAFT VERSUS HOST DISEASE
     Dosage: 0.25 MG, TWICE DAILY DAY -3 THROUGH DAY +100.
     Route: 048
  2. METHOTREXATE. [Suspect]
     Active Substance: METHOTREXATE
     Indication: PROPHYLAXIS AGAINST GRAFT VERSUS HOST DISEASE
     Dosage: 7.5 MG/M2, ON DAYS +1, +3, AND +6), UNKNOWN FREQUENCY
     Route: 065
  3. TACROLIMUS. [Suspect]
     Active Substance: TACROLIMUS
     Indication: ALLOGENIC STEM CELL TRANSPLANTATION
  4. METHOTREXATE. [Suspect]
     Active Substance: METHOTREXATE
     Indication: ALLOGENIC STEM CELL TRANSPLANTATION

REACTIONS (2)
  - Thrombotic microangiopathy [Recovered/Resolved]
  - Cytomegalovirus infection reactivation [Recovered/Resolved]

NARRATIVE: CASE EVENT DATE: 20140423
